FAERS Safety Report 4987427-4 (Version None)
Quarter: 2006Q2

REPORT INFORMATION
  Report Type: 
  Country: None (occurrence: None)
  Receive Date: 20060427
  Receipt Date: 20060427
  Transmission Date: 20061013
  Serious: Yes (Hospitalization)
  Sender: FDA-Public Use
  Company Number: None

PATIENT
  Age: 79 Year
  Sex: Male
  Weight: 124.7392 kg

DRUGS (17)
  1. BACLOFEN [Suspect]
     Dosage: 75MG BID PO   (5 DOSES POSSIBLE RECEIVED)
     Route: 048
     Dates: start: 20060227, end: 20060302
  2. DURAGESIC-100 [Concomitant]
  3. PLAVIX [Concomitant]
  4. LASIX [Concomitant]
  5. SYNTHROID [Concomitant]
  6. FLOMAX [Concomitant]
  7. AMBIEN [Concomitant]
  8. EMCYT [Concomitant]
  9. DEXAMETHASONE [Concomitant]
  10. MS CONTIN [Concomitant]
  11. LACTULOSE [Concomitant]
  12. FORTAZ [Concomitant]
  13. LYRICA [Concomitant]
  14. PHENERGAN HCL [Concomitant]
  15. KLONEPIN [Concomitant]
  16. TRAMADOL HYDROCHLORIDE AND ACETAMINOPHEN [Concomitant]
  17. MS CONTIN [Concomitant]

REACTIONS (7)
  - ARTHRALGIA [None]
  - CONFUSIONAL STATE [None]
  - DRUG PRESCRIBING ERROR [None]
  - MYOCLONUS [None]
  - NEURALGIA [None]
  - SOMNOLENCE [None]
  - WRONG DRUG ADMINISTERED [None]
